FAERS Safety Report 4649458-3 (Version None)
Quarter: 2005Q2

REPORT INFORMATION
  Report Type: 
  Country: None (occurrence: None)
  Receive Date: 20050331
  Receipt Date: 20041223
  Transmission Date: 20051028
  Serious: No
  Sender: FDA-Public Use
  Company Number: 04P-163-0284470-00

PATIENT
  Age: 59 Year
  Sex: Female
  Weight: 65.7716 kg

DRUGS (13)
  1. HUMIRA [Suspect]
     Indication: RHEUMATOID ARTHRITIS
     Dosage: 40 MG, 1 IN 2 WK, SUBCUTANEOUS
     Route: 058
     Dates: start: 20040602
  2. FISH OIL [Concomitant]
  3. MULTI-VITAMINS [Concomitant]
  4. LOTREL [Concomitant]
  5. ESTRADIOL [Concomitant]
  6. PROGESTERONE [Concomitant]
  7. STINGING NETTLE TEA [Concomitant]
  8. GREEN TEA [Concomitant]
  9. MELOXICAM [Concomitant]
  10. METHOTREXATE SODIUM [Concomitant]
  11. FOLIC ACID [Concomitant]
  12. VITAMIN B COMPLEX CAP [Concomitant]
  13. CALCIUM GLUCONATE [Concomitant]

REACTIONS (1)
  - INJECTION SITE SWELLING [None]
